FAERS Safety Report 6423574-8 (Version None)
Quarter: 2009Q4

REPORT INFORMATION
  Report Type: 
  Country: None (occurrence: None)
  Receive Date: 20091028
  Receipt Date: 20091015
  Transmission Date: 20100525
  Serious: Yes (Other)
  Sender: FDA-Public Use
  Company Number: DE-1170556

PATIENT
  Age: 86 Year
  Sex: Male

DRUGS (8)
  1. FLUORESCITE [Suspect]
     Dosage: 2.5 ML INTRAVENOUS BOLUS
     Route: 040
     Dates: start: 20090722
  2. METOPROLOL [Concomitant]
  3. ENALAPRIL [Concomitant]
  4. MOLSIDOMIN [Concomitant]
  5. BEZAFIBRATE [Concomitant]
  6. PRONTOPYRIN [Concomitant]
  7. TRAMADOL (TRAMADOL HYDOCHLORIDE) [Concomitant]
  8. HCT GAMMA (HYDROCHLOROTHIAZIDE) [Concomitant]

REACTIONS (10)
  - BRADYCARDIA [None]
  - COLD SWEAT [None]
  - FACIAL PARESIS [None]
  - FALL [None]
  - HEART RATE INCREASED [None]
  - HYPOTENSION [None]
  - LOSS OF CONSCIOUSNESS [None]
  - MYDRIASIS [None]
  - NAUSEA [None]
  - URINARY INCONTINENCE [None]
